FAERS Safety Report 4422003-3 (Version None)
Quarter: 2004Q3

REPORT INFORMATION
  Report Type: 
  Country: None (occurrence: None)
  Receive Date: 20040709
  Receipt Date: 20040202
  Transmission Date: 20050211
  Serious: Yes (Other)
  Sender: FDA-Public Use
  Company Number: US-SHR-04-020537

PATIENT
  Age: 16 Year
  Sex: Female

DRUGS (1)
  1. ULTRAVIST 370 [Suspect]
     Indication: COMPUTERISED TOMOGRAM
     Dosage: 70 ML, 1 DOSE, INTRAVENOUS
     Route: 042
     Dates: start: 20040104, end: 20040104

REACTIONS (3)
  - DYSPNOEA [None]
  - RASH [None]
  - TONGUE DISORDER [None]
